FAERS Safety Report 7709581-3 (Version None)
Quarter: 2011Q3

REPORT INFORMATION
  Report Type: 
  Country: None (occurrence: None)
  Receive Date: 20110819
  Receipt Date: 20110811
  Transmission Date: 20111222
  Serious: Yes (Other)
  Sender: FDA-Public Use
  Company Number: 1009354

PATIENT
  Age: 62 Year
  Sex: Female
  Weight: 71.6 kg

DRUGS (1)
  1. PACLITAXEL [Suspect]
     Indication: BREAST CANCER
     Dosage: 310MG, EVERY 21 DAYS, INTRAVENOUS (NOT OTHERWISE SPECIFIED)
     Route: 042
     Dates: start: 20110712, end: 20110712

REACTIONS (2)
  - THROAT TIGHTNESS [None]
  - DYSPNOEA [None]
